FAERS Safety Report 25254016 (Version 1)
Quarter: 2025Q2

REPORT INFORMATION
  Report Type: Spontaneous
  Country: AT (occurrence: AT)
  Receive Date: 20250430
  Receipt Date: 20250430
  Transmission Date: 20250717
  Serious: Yes (Hospitalization)
  Sender: EMD SERONO INC
  Company Number: AT-Merck Healthcare KGaA-2025020982

PATIENT
  Sex: Female

DRUGS (1)
  1. EUTHYROX [Suspect]
     Active Substance: LEVOTHYROXINE SODIUM
     Indication: Thyroid disorder

REACTIONS (3)
  - Hospitalisation [Unknown]
  - Diarrhoea [Not Recovered/Not Resolved]
  - Incorrect dose administered [Unknown]
